FAERS Safety Report 11314218 (Version 1)
Quarter: 2015Q3

REPORT INFORMATION
  Report Type: Spontaneous
  Country: US (occurrence: US)
  Receive Date: 20150727
  Receipt Date: 20150727
  Transmission Date: 20151125
  Serious: No
  Sender: FDA-Public Use
  Company Number: US-GALDERMA-US15002019

PATIENT
  Age: 34 Year
  Sex: Female

DRUGS (3)
  1. UNSPECIFIED ANTIBIOTIC [Concomitant]
     Active Substance: UNSPECIFIED INGREDIENT
  2. DIFFERIN [Suspect]
     Active Substance: ADAPALENE
     Dosage: 0.1%
     Dates: start: 20150228, end: 20150308
  3. MIFEPREX [Concomitant]
     Active Substance: MIFEPRISTONE

REACTIONS (2)
  - Exposure during pregnancy [Not Recovered/Not Resolved]
  - Abortion induced [Not Recovered/Not Resolved]

NARRATIVE: CASE EVENT DATE: 20150308
